FAERS Safety Report 18648398 (Version 1)
Quarter: 2020Q4

REPORT INFORMATION
  Report Type: Spontaneous
  Country: US (occurrence: US)
  Receive Date: 20201222
  Receipt Date: 20201222
  Transmission Date: 20210114
  Serious: No
  Sender: FDA-Public Use
  Company Number: None

PATIENT
  Age: 58 Year
  Sex: Male
  Weight: 73.3 kg

DRUGS (1)
  1. KEFLEX [Suspect]
     Active Substance: CEPHALEXIN

REACTIONS (8)
  - Skin disorder [None]
  - Bacterial infection [None]
  - Incision site complication [None]
  - Medical device site infection [None]
  - Device related infection [None]
  - Purulent discharge [None]
  - Staphylococcal infection [None]
  - Infected cyst [None]

NARRATIVE: CASE EVENT DATE: 20201129
